FAERS Safety Report 15340834 (Version 2)
Quarter: 2018Q3

REPORT INFORMATION
  Report Type: Report from Study
  Country: US (occurrence: US)
  Receive Date: 20180831
  Receipt Date: 20180910
  Transmission Date: 20181010
  Serious: No
  Sender: FDA-Public Use
  Company Number: US-SA-2018SA239135

PATIENT
  Age: 48 Year
  Sex: Male

DRUGS (3)
  1. ACTHAR [CORTICOTROPHIN INJECTION, REPOSITORY] [Concomitant]
  2. TERIFLUNOMIDE [Suspect]
     Active Substance: TERIFLUNOMIDE
     Dosage: 14 MG, QD
     Route: 048
     Dates: start: 20180830
  3. TERIFLUNOMIDE [Suspect]
     Active Substance: TERIFLUNOMIDE
     Indication: MULTIPLE SCLEROSIS
     Dosage: 7 MG, QD
     Route: 048
     Dates: start: 20180803, end: 20180830

REACTIONS (5)
  - Fatigue [Unknown]
  - Muscle spasms [Not Recovered/Not Resolved]
  - Headache [Unknown]
  - Flatulence [Not Recovered/Not Resolved]
  - Abdominal pain upper [Not Recovered/Not Resolved]

NARRATIVE: CASE EVENT DATE: 201808
